FAERS Safety Report 25900340 (Version 2)
Quarter: 2025Q4

REPORT INFORMATION
  Report Type: Spontaneous
  Country: GB (occurrence: GB)
  Receive Date: 20251009
  Receipt Date: 20251022
  Transmission Date: 20260118
  Serious: Yes (Other)
  Sender: BOEHRINGER INGELHEIM
  Company Number: None

PATIENT
  Age: 69 Year
  Sex: Female
  Weight: 80 kg

DRUGS (2)
  1. PRAMIPEXOLE [Suspect]
     Active Substance: PRAMIPEXOLE
     Indication: Restless legs syndrome
     Dosage: 3 X 088MG PER NIGHT
  2. PRAMIPEXOLE [Suspect]
     Active Substance: PRAMIPEXOLE
     Dosage: 5 X 088MG NOCTE
     Dates: end: 20240901

REACTIONS (3)
  - Restless leg augmentation syndrome [Recovered/Resolved with Sequelae]
  - Lip cosmetic procedure [Recovered/Resolved with Sequelae]
  - Medication error [Unknown]
